FAERS Safety Report 7258013-0 (Version None)
Quarter: 2011Q1

REPORT INFORMATION
  Report Type: 
  Country: None (occurrence: None)
  Receive Date: 20110129
  Receipt Date: 20100616
  Transmission Date: 20110831
  Serious: No
  Sender: FDA-Public Use
  Company Number: US-ABBOTT-10P-163-0651566-00

PATIENT
  Age: 50 Year
  Sex: Female

DRUGS (10)
  1. HUMIRA [Suspect]
     Indication: PSORIASIS
     Dates: start: 20100401
  2. FLAX SEED [Concomitant]
     Indication: PRODUCT USED FOR UNKNOWN INDICATION
  3. CHEMOTHERAPY [Concomitant]
     Indication: PRECANCEROUS SKIN LESION
  4. VITAMIN D [Concomitant]
     Indication: PRODUCT USED FOR UNKNOWN INDICATION
  5. BENADRYL [Concomitant]
     Indication: INSOMNIA
  6. CALCIUM [Concomitant]
     Indication: PRODUCT USED FOR UNKNOWN INDICATION
  7. MELATONIN [Concomitant]
     Indication: INSOMNIA
  8. SLEEPING PILL [Concomitant]
     Indication: INSOMNIA
  9. MULTI-VITAMIN [Concomitant]
     Indication: PRODUCT USED FOR UNKNOWN INDICATION
  10. LO/OVRAL [Concomitant]
     Indication: HORMONE REPLACEMENT THERAPY

REACTIONS (2)
  - LYMPHADENOPATHY [None]
  - THROAT IRRITATION [None]
